FAERS Safety Report 16915751 (Version 1)
Quarter: 2019Q4

REPORT INFORMATION
  Report Type: Spontaneous
  Country: CA (occurrence: CA)
  Receive Date: 20191014
  Receipt Date: 20191014
  Transmission Date: 20200122
  Serious: Yes (Other)
  Sender: FDA-Public Use
  Company Number: CA-NOVOPROD-689071

PATIENT
  Sex: Male

DRUGS (1)
  1. OZEMPIC [Suspect]
     Active Substance: SEMAGLUTIDE
     Indication: WEIGHT CONTROL
     Dosage: UNK
     Route: 065

REACTIONS (5)
  - Fall [Unknown]
  - Off label use [Unknown]
  - Upper limb fracture [Unknown]
  - Face injury [Unknown]
  - Hypoglycaemia [Unknown]
